FAERS Safety Report 6758707 (Version 4)
Quarter: 2020Q3

REPORT INFORMATION
  Report Type: Report from Study
  Country: US (occurrence: US)
  Receive Date: 20080915
  Receipt Date: 20081226
  Transmission Date: 20201105
  Serious: Yes (Hospitalization, Other)
  Sender: FDA-Public Use
  Company Number: US-ROCHE-584700

PATIENT
  Age: 80 Year
  Sex: Female
  Weight: 53.1 kg

DRUGS (10)
  1. LISINOPRIL. [Concomitant]
     Active Substance: LISINOPRIL
     Indication: HYPERTENSION
     Dosage: DOSE REPORTED AS: 1 DAILY
  2. ATENOLOL. [Concomitant]
     Active Substance: ATENOLOL
     Indication: ATRIAL FIBRILLATION
  3. PLENDIL [Concomitant]
     Active Substance: FELODIPINE
  4. LOTREL [Concomitant]
     Active Substance: AMLODIPINE BESYLATE\BENAZEPRIL HYDROCHLORIDE
  5. IBANDRONIC ACID. [Suspect]
     Active Substance: IBANDRONIC ACID
     Indication: OSTEOPOROSIS
     Route: 065
     Dates: start: 200510, end: 200512
  6. PRILOSEC [Concomitant]
     Active Substance: OMEPRAZOLE MAGNESIUM
  7. TYLENOL [Concomitant]
     Active Substance: ACETAMINOPHEN
     Indication: PAIN
     Dosage: DOSE REPORTED AS: 2 PRN
  8. LABETALOL [Concomitant]
     Active Substance: LABETALOL\LABETALOL HYDROCHLORIDE
     Indication: HYPERTENSION
     Dosage: DOSE REPORTED AS: 1 BID
  9. FELODIPINE. [Concomitant]
     Active Substance: FELODIPINE
     Indication: HYPERTENSION
     Dosage: DOSE REPORTED AS: 1 DAILY
  10. CALCIUM [Concomitant]
     Active Substance: CALCIUM

REACTIONS (8)
  - Periodontitis [Recovered/Resolved]
  - Anaemia [Recovered/Resolved]
  - Hiatus hernia [Unknown]
  - Spinal fracture [Unknown]
  - Hypersensitivity [Recovered/Resolved]
  - Jaundice [Recovered/Resolved]
  - Dyspnoea [Unknown]
  - Peptic ulcer haemorrhage [Recovered/Resolved]

NARRATIVE: CASE EVENT DATE: 20051101
